FAERS Safety Report 6609329-X (Version None)
Quarter: 2010Q1

REPORT INFORMATION
  Report Type: 
  Country: None (occurrence: None)
  Receive Date: 20100302
  Receipt Date: 20100222
  Transmission Date: 20100710
  Serious: Yes (Other)
  Sender: FDA-Public Use
  Company Number: US-BIOGENIDEC-2008BI008173

PATIENT
  Age: 60 Year
  Sex: Female
  Weight: 125 kg

DRUGS (6)
  1. TYSABRI [Suspect]
     Indication: MULTIPLE SCLEROSIS
     Route: 042
     Dates: start: 20061006, end: 20080325
  2. TYSABRI [Suspect]
     Route: 042
     Dates: start: 20080611
  3. NORVASC [Concomitant]
  4. VYTORIN [Concomitant]
  5. AMBIEN [Concomitant]
     Indication: INSOMNIA
  6. CYMBALTA [Concomitant]

REACTIONS (26)
  - ASTHENIA [None]
  - CHOLELITHIASIS [None]
  - CYSTITIS [None]
  - DEPRESSION [None]
  - DRUG EFFECT DECREASED [None]
  - DYSSTASIA [None]
  - EAR INFECTION [None]
  - FALL [None]
  - FATIGUE [None]
  - GAIT DISTURBANCE [None]
  - HAEMOGLOBIN DECREASED [None]
  - HYPOAESTHESIA [None]
  - INSOMNIA [None]
  - IRON DEFICIENCY [None]
  - MALIGNANT MELANOMA [None]
  - MENISCUS LESION [None]
  - MUSCULAR WEAKNESS [None]
  - OVERWEIGHT [None]
  - PAIN [None]
  - PAIN IN EXTREMITY [None]
  - PARAESTHESIA [None]
  - PSYCHOMOTOR HYPERACTIVITY [None]
  - RED BLOOD CELL MICROCYTES PRESENT [None]
  - SENSORY DISTURBANCE [None]
  - SKIN IRRITATION [None]
  - VITAMIN D DECREASED [None]
